FAERS Safety Report 8655480 (Version 3)
Quarter: 2012Q4

REPORT INFORMATION
  Report Type: 
  Country: US (occurrence: US)
  Receive Date: 20120709
  Receipt Date: 20120921
  Transmission Date: 20130627
  Serious: Yes (Hospitalization, Other)
  Sender: FDA-Public Use
  Company Number: US-ELI_LILLY_AND_COMPANY-US201108000319

PATIENT
  Age: 72 Year
  Sex: Female
  Weight: 49.89 kg

DRUGS (2)
  1. FORTEO [Suspect]
     Indication: OSTEOPOROSIS
     Dosage: 20 ug, qd
     Route: 058
     Dates: start: 20110618, end: 20110618
  2. FORTEO [Suspect]
     Dosage: 20 ug, qd
     Route: 058

REACTIONS (4)
  - Road traffic accident [Recovered/Resolved]
  - Head injury [Recovered/Resolved]
  - Upper limb fracture [Recovered/Resolved]
  - Injection site bruising [Recovered/Resolved]
